FAERS Safety Report 7360393-2 (Version None)
Quarter: 2011Q1

REPORT INFORMATION
  Report Type: 
  Country: None (occurrence: None)
  Receive Date: 20110318
  Receipt Date: 20110308
  Transmission Date: 20110831
  Serious: Yes (Death, Hospitalization, Other)
  Sender: FDA-Public Use
  Company Number: US-CELGENEUS-163-21880-11031221

PATIENT
  Sex: Male
  Weight: 72.64 kg

DRUGS (33)
  1. ZOSYN [Concomitant]
     Indication: ASPIRATION
     Route: 065
  2. HYDROCORTISONE [Concomitant]
     Dosage: 50 MILLIGRAM
     Route: 065
     Dates: start: 20101218
  3. VELCADE [Concomitant]
     Dosage: 1.3 MILLIGRAM/SQ. METER
     Route: 065
     Dates: start: 20101221
  4. DECADRON [Concomitant]
     Route: 065
  5. VANCOMYCIN [Concomitant]
     Route: 065
     Dates: start: 20101218
  6. CEFEPIME [Concomitant]
     Route: 065
  7. METOPROLOL TARTRATE [Concomitant]
     Indication: ATRIAL FIBRILLATION
  8. PREDNISONE TAB [Concomitant]
     Route: 065
  9. LASIX [Concomitant]
     Dosage: 60 MILLIGRAM
     Route: 051
     Dates: start: 20101216
  10. MSIR [Concomitant]
     Dosage: 15 MILLIGRAM
     Route: 065
  11. PHENYTOIN [Concomitant]
     Route: 065
     Dates: start: 20101218
  12. POTASSIUM [Concomitant]
     Route: 048
  13. REVLIMID [Suspect]
     Dosage: 25 MILLIGRAM
     Route: 048
     Dates: start: 20101001
  14. NORMAL SALINE [Concomitant]
     Dosage: 3 LITERS
     Route: 051
     Dates: start: 20101209
  15. DIGOXIN [Concomitant]
     Dosage: .125 MILLIGRAM
     Route: 065
  16. LORTAB [Concomitant]
     Route: 065
  17. TOPROL-XL [Concomitant]
     Dosage: 25 MILLIGRAM
     Route: 065
  18. MORPHINE [Concomitant]
     Dosage: 2 MILLIGRAM
     Route: 051
     Dates: start: 20101216
  19. ALLOPURINOL [Concomitant]
     Route: 065
  20. DILTIAZEM [Concomitant]
     Dosage: 10 MILLIGRAM
     Route: 065
  21. REVLIMID [Suspect]
     Indication: MULTIPLE MYELOMA
     Dosage: 25 MILLIGRAM
     Route: 048
     Dates: start: 20091001
  22. PHOSPHORUS [Concomitant]
     Route: 065
  23. MERREM [Concomitant]
     Route: 065
     Dates: start: 20101218
  24. ZOFRAN [Concomitant]
     Route: 065
  25. POTASSIUM [Concomitant]
     Route: 051
  26. LASIX [Concomitant]
     Dosage: 40 MILLIGRAM
     Route: 051
     Dates: start: 20101209
  27. ZOMETA [Concomitant]
     Indication: HYPERPARATHYROIDISM
     Dosage: 4 MILLIGRAM
     Route: 051
  28. REVLIMID [Suspect]
     Dosage: 25 MILLIGRAM
     Route: 048
     Dates: start: 20100101
  29. LEVOPHED [Concomitant]
     Route: 065
  30. METOPROLOL TARTRATE [Concomitant]
     Indication: HEART RATE
     Dosage: 10 MILLIGRAM
     Route: 065
  31. LEVAQUIN [Concomitant]
     Route: 065
  32. MICAFUNGIN [Concomitant]
     Route: 065
     Dates: start: 20101218
  33. PROTONIX [Concomitant]
     Route: 065

REACTIONS (10)
  - SHOCK [None]
  - HYPERCALCAEMIA [None]
  - CONVULSION [None]
  - DEHYDRATION [None]
  - RENAL FAILURE ACUTE [None]
  - RESPIRATORY ARREST [None]
  - ATRIAL FIBRILLATION [None]
  - MULTIPLE MYELOMA [None]
  - RESPIRATORY FAILURE [None]
  - RESPIRATORY DISTRESS [None]
